FAERS Safety Report 10597082 (Version 1)
Quarter: 2014Q4

REPORT INFORMATION
  Report Type: Spontaneous
  Country: GB (occurrence: GB)
  Receive Date: 20141121
  Receipt Date: 20141121
  Transmission Date: 20150529
  Serious: Yes (Congenital Anomaly, Other)
  Sender: FDA-Public Use
  Company Number: GB-AUROBINDO-AUR-APL-2014-12035

PATIENT

DRUGS (2)
  1. ESCITALOPRAM 20 MG [Suspect]
     Active Substance: ESCITALOPRAM OXALATE
     Indication: DECREASED APPETITE
     Dosage: 20 MG, UNK
     Route: 064
  2. ESCITALOPRAM 20 MG [Suspect]
     Active Substance: ESCITALOPRAM OXALATE
     Indication: ANXIETY

REACTIONS (2)
  - Ventricular septal defect [Unknown]
  - Foetal exposure during pregnancy [Unknown]
